FAERS Safety Report 6573371-8 (Version None)
Quarter: 2010Q1

REPORT INFORMATION
  Report Type: 
  Country: None (occurrence: None)
  Receive Date: 20100208
  Receipt Date: 20100201
  Transmission Date: 20100710
  Serious: Yes (Hospitalization, Other)
  Sender: FDA-Public Use
  Company Number: US-SANOFI-AVENTIS-2009SA010445

PATIENT
  Age: 77 Year
  Sex: Male
  Weight: 113.4 kg

DRUGS (7)
  1. MULTAQ [Suspect]
     Indication: ATRIAL FLUTTER
     Route: 048
     Dates: start: 20091109, end: 20091228
  2. LIPITOR [Suspect]
     Indication: CORONARY ARTERY DISEASE
     Route: 048
     Dates: start: 20041015, end: 20091218
  3. LIPITOR [Suspect]
     Route: 048
     Dates: start: 20041015, end: 20091218
  4. TOPROL-XL [Concomitant]
     Indication: HYPERTENSION
     Route: 048
     Dates: start: 20041015
  5. COUMADIN [Concomitant]
     Indication: ATRIAL FIBRILLATION
     Route: 048
     Dates: start: 20041015, end: 20091218
  6. COUMADIN [Concomitant]
     Indication: ATRIAL FLUTTER
     Route: 048
     Dates: start: 20041015, end: 20091218
  7. ASPIRIN [Concomitant]
     Indication: CORONARY ARTERY DISEASE
     Route: 048
     Dates: start: 20041015

REACTIONS (4)
  - ATRIAL FLUTTER [None]
  - DRUG INEFFECTIVE [None]
  - FALL [None]
  - TENDON RUPTURE [None]
